FAERS Safety Report 23423668 (Version 1)
Quarter: 2024Q1

REPORT INFORMATION
  Report Type: Report from Study
  Country: MX (occurrence: None)
  Receive Date: 20240119
  Receipt Date: 20240119
  Transmission Date: 20240410
  Serious: Yes (Other)
  Sender: FDA-Public Use
  Company Number: 2024A011520

PATIENT
  Age: 16376 Day
  Sex: Male
  Weight: 135 kg

DRUGS (3)
  1. XIGDUO XR [Suspect]
     Active Substance: DAPAGLIFLOZIN PROPANEDIOL\METFORMIN HYDROCHLORIDE
     Indication: Diabetes mellitus
     Dosage: 10/1000MG
     Route: 048
     Dates: start: 2021, end: 202211
  2. XIGDUO XR [Suspect]
     Active Substance: DAPAGLIFLOZIN PROPANEDIOL\METFORMIN HYDROCHLORIDE
     Indication: Diabetes mellitus
     Dosage: 5/1000MG
     Route: 048
     Dates: start: 202211
  3. METFORMIN [Suspect]
     Active Substance: METFORMIN HYDROCHLORIDE
     Indication: Diabetes mellitus
     Route: 048

REACTIONS (15)
  - Hepatic steatosis [Unknown]
  - Hypertension [Unknown]
  - Hypersensitivity [Recovered/Resolved]
  - Toxicity to various agents [Recovered/Resolved]
  - Dyspepsia [Unknown]
  - Pain [Recovered/Resolved]
  - Feeling abnormal [Recovered/Resolved]
  - Discomfort [Recovered/Resolved]
  - Paraesthesia [Recovered/Resolved]
  - Swelling [Recovered/Resolved]
  - Blood glucose increased [Unknown]
  - Fatigue [Recovered/Resolved]
  - Dry mouth [Recovered/Resolved]
  - Dysgeusia [Recovered/Resolved]
  - Anxiety [Unknown]

NARRATIVE: CASE EVENT DATE: 20230701
